FAERS Safety Report 25357962 (Version 1)
Quarter: 2025Q2

REPORT INFORMATION
  Report Type: Spontaneous
  Country: HU (occurrence: HU)
  Receive Date: 20250526
  Receipt Date: 20250526
  Transmission Date: 20250717
  Serious: Yes (Other)
  Sender: LEO PHARM
  Company Number: None

PATIENT
  Age: 52 Year
  Sex: Male

DRUGS (18)
  1. TACROLIMUS [Suspect]
     Active Substance: TACROLIMUS
     Indication: Product used for unknown indication
  2. TACROLIMUS [Suspect]
     Active Substance: TACROLIMUS
     Indication: Product used for unknown indication
     Dates: start: 20231213
  3. MELPHALAN [Suspect]
     Active Substance: MELPHALAN
     Indication: Bone marrow conditioning regimen
  4. MELPHALAN [Suspect]
     Active Substance: MELPHALAN
     Indication: T-cell prolymphocytic leukaemia
  5. MYCOPHENOLATE MOFETIL [Suspect]
     Active Substance: MYCOPHENOLATE MOFETIL
     Indication: Prophylaxis against graft versus host disease
     Dates: start: 20231213
  6. MYCOPHENOLATE MOFETIL [Suspect]
     Active Substance: MYCOPHENOLATE MOFETIL
     Indication: Prophylaxis against graft versus host disease
  7. THIOGUANINE [Suspect]
     Active Substance: THIOGUANINE
     Indication: Bone marrow conditioning regimen
  8. THIOGUANINE [Suspect]
     Active Substance: THIOGUANINE
     Indication: T-cell prolymphocytic leukaemia
  9. CLADRIBINE [Suspect]
     Active Substance: CLADRIBINE
     Indication: T-cell prolymphocytic leukaemia
  10. THIOTEPA [Suspect]
     Active Substance: THIOTEPA
     Indication: Product used for unknown indication
  11. VENETOCLAX [Suspect]
     Active Substance: VENETOCLAX
     Indication: T-cell prolymphocytic leukaemia
  12. RUXOLITINIB [Suspect]
     Active Substance: RUXOLITINIB
     Indication: T-cell prolymphocytic leukaemia
  13. CYCLOPHOSPHAMIDE [Suspect]
     Active Substance: CYCLOPHOSPHAMIDE
     Indication: Prophylaxis against graft versus host disease
  14. CYCLOPHOSPHAMIDE [Suspect]
     Active Substance: CYCLOPHOSPHAMIDE
     Indication: Prophylaxis against graft versus host disease
     Dates: start: 20231213
  15. ALKERAN [Suspect]
     Active Substance: MELPHALAN
     Indication: Product used for unknown indication
  16. FLUDARABINE PHOSPHATE [Suspect]
     Active Substance: FLUDARABINE PHOSPHATE
     Indication: T-cell prolymphocytic leukaemia
  17. FLUDARABINE PHOSPHATE [Suspect]
     Active Substance: FLUDARABINE PHOSPHATE
     Indication: Bone marrow conditioning regimen
  18. CELLCEPT [Suspect]
     Active Substance: MYCOPHENOLATE MOFETIL
     Indication: Prophylaxis against graft versus host disease
     Dates: start: 20231213

REACTIONS (4)
  - Systemic mycosis [Recovered/Resolved]
  - Acute graft versus host disease in skin [Recovered/Resolved]
  - Off label use [Unknown]
  - Bacteraemia [Recovered/Resolved]
